FAERS Safety Report 24718893 (Version 1)
Quarter: 2024Q4

REPORT INFORMATION
  Report Type: Spontaneous
  Country: US (occurrence: None)
  Receive Date: 20241210
  Receipt Date: 20241210
  Transmission Date: 20250115
  Serious: Yes (Life-Threatening, Other)
  Sender: Public
  Company Number: None

PATIENT
  Age: 45 Year
  Sex: Male
  Weight: 99 kg

DRUGS (3)
  1. SEMAGLUTIDE [Suspect]
     Active Substance: SEMAGLUTIDE
     Indication: Weight abnormal
     Dosage: OTHER QUANTITY : 1 INJECTION(S);?OTHER FREQUENCY : ONCE A WEEK;?
     Route: 058
     Dates: start: 20241123, end: 20241206
  2. XANAX [Concomitant]
     Active Substance: ALPRAZOLAM
  3. ADVIL [Concomitant]
     Active Substance: IBUPROFEN

REACTIONS (14)
  - Product quality issue [None]
  - Confusional state [None]
  - Emotional disorder [None]
  - Social fear [None]
  - Vision blurred [None]
  - Decreased appetite [None]
  - Abdominal pain [None]
  - Blood pressure increased [None]
  - Anxiety [None]
  - Nausea [None]
  - Myalgia [None]
  - Muscle spasms [None]
  - Jaw disorder [None]
  - Product preparation error [None]

NARRATIVE: CASE EVENT DATE: 20241202
